FAERS Safety Report 8834720 (Version 1)
Quarter: 2012Q4

REPORT INFORMATION
  Report Type: Spontaneous
  Country: GB (occurrence: None)
  Receive Date: 20121009
  Receipt Date: 20121009
  Transmission Date: 20130627
  Serious: Yes (Hospitalization)
  Sender: FDA-Public Use
  Company Number: GB-009642

PATIENT
  Sex: Female

DRUGS (1)
  1. PICOLAX [Suspect]
     Indication: COLONOSCOPY
     Dosage: (two sachets)
     Route: 048
     Dates: start: 201209, end: 201209

REACTIONS (6)
  - Vomiting [None]
  - Diarrhoea [None]
  - Dehydration [None]
  - Drug ineffective [None]
  - Malaise [None]
  - Dysstasia [None]
